FAERS Safety Report 6993969-2 (Version None)
Quarter: 2010Q3

REPORT INFORMATION
  Report Type: 
  Country: None (occurrence: None)
  Receive Date: 20100917
  Receipt Date: 20070905
  Transmission Date: 20110219
  Serious: Yes (Hospitalization, Other)
  Sender: FDA-Public Use
  Company Number: US-ASTRAZENECA-2006UW11665

PATIENT
  Age: 47 Year
  Sex: Female
  Weight: 129.3 kg

DRUGS (9)
  1. SEROQUEL [Suspect]
     Indication: BIPOLAR DISORDER
     Route: 048
     Dates: start: 20040101
  2. SEROQUEL [Suspect]
     Indication: DEPRESSION
     Route: 048
     Dates: start: 20040101
  3. SEROQUEL [Suspect]
     Dosage: 100-1000MG
     Route: 048
     Dates: start: 20040920
  4. SEROQUEL [Suspect]
     Dosage: 100-1000MG
     Route: 048
     Dates: start: 20040920
  5. CLOZARIL [Concomitant]
  6. ACTOS [Concomitant]
     Dosage: 15-45MG
     Route: 048
     Dates: start: 20020831
  7. ATENOLOL [Concomitant]
     Route: 048
     Dates: start: 20020917
  8. HUMULIN 70/30 [Concomitant]
     Dosage: 6-93 UNITS
     Route: 058
     Dates: start: 20020917
  9. GLUCOTROL [Concomitant]
     Route: 048
     Dates: start: 20020831

REACTIONS (6)
  - BLOOD TRIGLYCERIDES INCREASED [None]
  - DIABETES MELLITUS [None]
  - DIABETIC KETOACIDOSIS [None]
  - HYPOGLYCAEMIA [None]
  - OBESITY [None]
  - TARDIVE DYSKINESIA [None]
